FAERS Safety Report 4644422-2 (Version None)
Quarter: 2005Q2

REPORT INFORMATION
  Report Type: 
  Country: None (occurrence: None)
  Receive Date: 20050331
  Receipt Date: 20041207
  Transmission Date: 20051028
  Serious: No
  Sender: FDA-Public Use
  Company Number: 04P-163-0282520-00

PATIENT
  Age: 77 Year
  Sex: Female
  Weight: 81.1939 kg

DRUGS (8)
  1. HUMIRA [Suspect]
     Indication: RHEUMATOID ARTHRITIS
     Dosage: 40 MG, 1 IN 2 WK, SUBCUTANEOUS
     Route: 058
     Dates: start: 20031201
  2. ETRAFON-D [Concomitant]
  3. DILTIAZEM HYDROCHLORIDE [Concomitant]
  4. ATENOLOL [Concomitant]
  5. ASPIRIN [Concomitant]
  6. FUROSEMIDE [Concomitant]
  7. FOLTX [Concomitant]
  8. METHOTREXATE SODIUM [Concomitant]

REACTIONS (2)
  - DIABETES MELLITUS [None]
  - FUNGAL INFECTION [None]
